FAERS Safety Report 16085118 (Version 1)
Quarter: 2019Q2

REPORT INFORMATION
  Report Type: Spontaneous
  Country: US (occurrence: US)
  Receive Date: 20190318
  Receipt Date: 20190318
  Transmission Date: 20190711
  Serious: Yes (Disabling, Other)
  Sender: FDA-Public Use
  Company Number: None

PATIENT
  Age: 53 Year
  Sex: Female
  Weight: 103.05 kg

DRUGS (8)
  1. LIPITOR [Concomitant]
     Active Substance: ATORVASTATIN CALCIUM
  2. METFORMIN [Concomitant]
     Active Substance: METFORMIN HYDROCHLORIDE
  3. SYNTHROID [Concomitant]
     Active Substance: LEVOTHYROXINE SODIUM
  4. HCTZ [Concomitant]
     Active Substance: HYDROCHLOROTHIAZIDE
  5. ATRIPLA [Concomitant]
     Active Substance: EFAVIRENZ\EMTRICITABINE\TENOFOVIR DISOPROXIL FUMARATE
  6. VISTARIL [Concomitant]
     Active Substance: HYDROXYZINE PAMOATE
  7. SEROQUEL [Concomitant]
     Active Substance: QUETIAPINE FUMARATE
  8. HYDROCODONE-ACETAMIN [Suspect]
     Active Substance: ACETAMINOPHEN\HYDROCODONE
     Indication: NEUROPATHY PERIPHERAL
     Dosage: ?          QUANTITY:1 TABLET(S);?
     Route: 048
     Dates: start: 20190313, end: 20190318

REACTIONS (5)
  - Palpitations [None]
  - Pain [None]
  - Headache [None]
  - Abdominal discomfort [None]
  - Product substitution issue [None]

NARRATIVE: CASE EVENT DATE: 20190313
